FAERS Safety Report 11465880 (Version 1)
Quarter: 2015Q3

REPORT INFORMATION
  Report Type: Report from Study
  Country: US (occurrence: US)
  Receive Date: 20150907
  Receipt Date: 20150907
  Transmission Date: 20151125
  Serious: Yes (Hospitalization, Other)
  Sender: FDA-Public Use
  Company Number: US-AMGEN-USASL2015090905

PATIENT
  Age: 71 Year
  Sex: Female

DRUGS (2)
  1. ENBREL [Suspect]
     Active Substance: ETANERCEPT
     Indication: RHEUMATOID ARTHRITIS
     Dosage: UNK UNK, UNK
     Route: 065
  2. METHOTREXATE [Concomitant]
     Active Substance: METHOTREXATE
     Dosage: UNK

REACTIONS (8)
  - Mobility decreased [Unknown]
  - Cellulitis [Recovered/Resolved]
  - Chronic obstructive pulmonary disease [Unknown]
  - Hepatic neoplasm [Unknown]
  - Pneumonia [Recovered/Resolved]
  - Endoscopy [Unknown]
  - Urinary tract infection [Recovered/Resolved]
  - Colonoscopy [Unknown]
